FAERS Safety Report 4508766-7 (Version None)
Quarter: 2004Q4

REPORT INFORMATION
  Report Type: 
  Country: None (occurrence: None)
  Receive Date: 20041123
  Receipt Date: 20040719
  Transmission Date: 20050328
  Serious: No
  Sender: FDA-Public Use
  Company Number: 2004S1001835

PATIENT
  Age: 42 Year
  Sex: Male
  Weight: 72.7 kg

DRUGS (10)
  1. WELLBUTRIN SR [Suspect]
     Indication: DEPRESSION
     Dosage: 150MG UNKNOWN
     Route: 048
     Dates: start: 20040401
  2. LOTREL [Suspect]
     Dosage: 10MG PER DAY
     Route: 048
     Dates: start: 20030801
  3. LEXAPRO [Suspect]
     Indication: DEPRESSION
     Dosage: 10MG UNKNOWN
     Route: 048
     Dates: start: 20010101
  4. CLONIDINE HCL [Concomitant]
     Dosage: .2MG TWICE PER DAY
     Route: 048
     Dates: start: 20030901
  5. AMILORIDE HCL AND HYDROCHLOROTHIAZIDE [Concomitant]
     Dosage: 50MG PER DAY
     Route: 048
     Dates: start: 20031001
  6. PERCOCET [Concomitant]
     Indication: PAIN
     Dosage: 10MG UNKNOWN
     Route: 048
     Dates: start: 20020101
  7. TRAZODONE HCL [Concomitant]
     Dosage: 150MG UNKNOWN
     Route: 065
     Dates: start: 20030201
  8. NEXIUM [Concomitant]
     Dosage: 40MG PER DAY
     Route: 065
     Dates: start: 20020101
  9. BEXTRA [Concomitant]
     Dosage: 20MG UNKNOWN
     Route: 065
     Dates: start: 20010101
  10. CARISOPRODOL [Concomitant]
     Dosage: 350MG UNKNOWN
     Route: 065
     Dates: start: 20020101

REACTIONS (1)
  - SEXUAL DYSFUNCTION [None]
